FAERS Safety Report 4920239-6 (Version None)
Quarter: 2006Q1

REPORT INFORMATION
  Report Type: 
  Country: None (occurrence: None)
  Receive Date: 20060113
  Receipt Date: 20051003
  Transmission Date: 20060701
  Serious: No
  Sender: FDA-Public Use
  Company Number: 2005SP003289

PATIENT
  Age: 72 Year
  Sex: Male

DRUGS (11)
  1. LUNESTA [Suspect]
     Indication: INSOMNIA
     Dosage: 3 MG; HS; ORAL
     Route: 048
     Dates: start: 20050701
  2. AMBIEN [Concomitant]
  3. AMIODARONE [Concomitant]
  4. PREVACID [Concomitant]
  5. ALTACE [Concomitant]
  6. AMLODIPINE [Concomitant]
  7. ALLEGRA [Concomitant]
  8. VITAMINS [Concomitant]
  9. TOPROL-XL [Concomitant]
  10. NIASPAN [Concomitant]
  11. TRIMANYL [Concomitant]

REACTIONS (1)
  - DYSGEUSIA [None]
